FAERS Safety Report 7276886-2 (Version None)
Quarter: 2011Q1

REPORT INFORMATION
  Report Type: 
  Country: None (occurrence: None)
  Receive Date: 20110207
  Receipt Date: 20110126
  Transmission Date: 20110831
  Serious: No
  Sender: FDA-Public Use
  Company Number: US-BIOGENIDEC-2010BI025114

PATIENT
  Age: 62 Year
  Sex: Female

DRUGS (1)
  1. TYSABRI [Suspect]
     Indication: MULTIPLE SCLEROSIS
     Route: 042
     Dates: start: 20090102, end: 20100702

REACTIONS (7)
  - ESCHERICHIA INFECTION [None]
  - BRONCHITIS CHRONIC [None]
  - IMMUNE SYSTEM DISORDER [None]
  - UPPER RESPIRATORY TRACT INFECTION [None]
  - COGNITIVE DISORDER [None]
  - URINARY TRACT INFECTION [None]
  - ESCHERICHIA URINARY TRACT INFECTION [None]
